FAERS Safety Report 8255425-3 (Version None)
Quarter: 2012Q2

REPORT INFORMATION
  Report Type: 
  Country: None (occurrence: None)
  Receive Date: 20120403
  Receipt Date: 20120322
  Transmission Date: 20120825
  Serious: Yes (Hospitalization)
  Sender: FDA-Public Use
  Company Number: US-SANOFI-AVENTIS-2012SA009588

PATIENT
  Age: 21 Year
  Sex: Male

DRUGS (1)
  1. ALLEGRA D 24 HOUR [Suspect]
     Route: 048
     Dates: end: 20100101

REACTIONS (2)
  - OESOPHAGEAL OBSTRUCTION [None]
  - PRODUCT QUALITY ISSUE [None]
